FAERS Safety Report 10421305 (Version 2)
Quarter: 2014Q4

REPORT INFORMATION
  Report Type: Spontaneous
  Country: DE (occurrence: DE)
  Receive Date: 20140831
  Receipt Date: 20141022
  Transmission Date: 20150528
  Serious: Yes (Other)
  Sender: FDA-Public Use
  Company Number: DE-JNJFOC-20140824692

PATIENT
  Age: 25 Year
  Sex: Female

DRUGS (2)
  1. DOLORMIN EXTRA [Suspect]
     Active Substance: IBUPROFEN
     Indication: ABSCESS
     Dosage: 1-2 TABLETS DAILY
     Route: 048
  2. DOLORMIN EXTRA [Suspect]
     Active Substance: IBUPROFEN
     Indication: RASH
     Dosage: 1-2 TABLETS DAILY
     Route: 048

REACTIONS (3)
  - Papilloedema [Not Recovered/Not Resolved]
  - Intracranial pressure increased [Not Recovered/Not Resolved]
  - Product use issue [Unknown]
